FAERS Safety Report 18489267 (Version 2)
Quarter: 2021Q2

REPORT INFORMATION
  Report Type: Other
  Country: CA (occurrence: CA)
  Receive Date: 20201111
  Receipt Date: 20210415
  Transmission Date: 20210717
  Serious: Yes (Life-Threatening, Other)
  Sender: FDA-Public Use
  Company Number: CA-APOTEX-2020AP021458

PATIENT
  Age: 72 Year
  Sex: Male

DRUGS (7)
  1. ZAROXOLYN [Suspect]
     Active Substance: METOLAZONE
     Indication: CARDIAC FAILURE CONGESTIVE
  2. COLCHICINE. [Concomitant]
     Active Substance: COLCHICINE
     Indication: PRODUCT USED FOR UNKNOWN INDICATION
     Route: 065
  3. FUROSEMIDE. [Suspect]
     Active Substance: FUROSEMIDE
     Indication: PRODUCT USED FOR UNKNOWN INDICATION
     Dosage: 120 MILLIGRAM, BID
     Route: 065
  4. SPIRONOLACTONE. [Suspect]
     Active Substance: SPIRONOLACTONE
     Indication: CARDIAC FAILURE CONGESTIVE
     Dosage: 50 MILLIGRAM, QD
     Route: 065
  5. ZAROXOLYN [Suspect]
     Active Substance: METOLAZONE
     Indication: OEDEMA
     Dosage: 5 MILLIGRAM, BID
     Route: 065
  6. ZAROXOLYN [Suspect]
     Active Substance: METOLAZONE
     Indication: FLUID OVERLOAD
     Dosage: UNK
     Route: 065
  7. RAMIPRIL. [Suspect]
     Active Substance: RAMIPRIL
     Indication: PRODUCT USED FOR UNKNOWN INDICATION
     Dosage: 10 MILLIGRAM, QD
     Route: 065

REACTIONS (3)
  - Myoclonus [Unknown]
  - Fall [Unknown]
  - Rhabdomyolysis [Unknown]
